FAERS Safety Report 12012844 (Version 3)
Quarter: 2016Q1

REPORT INFORMATION
  Report Type: Spontaneous
  Country: JP (occurrence: JP)
  Receive Date: 20160205
  Receipt Date: 20160328
  Transmission Date: 20160526
  Serious: Yes (Death)
  Sender: FDA-Public Use
  Company Number: JP-MALLINCKRODT-T201600344

PATIENT
  Age: 72 Year
  Sex: Male
  Weight: 34 kg

DRUGS (13)
  1. ACETAMINOPHEN. [Concomitant]
     Active Substance: ACETAMINOPHEN
     Indication: ANALGESIC THERAPY
     Dosage: 2400 MG
     Route: 048
     Dates: start: 20150406, end: 20150422
  2. ABSTRAL [Concomitant]
     Active Substance: FENTANYL CITRATE
     Indication: ANALGESIC THERAPY
     Dosage: 100 - 200 MCG
     Route: 060
     Dates: start: 20150326
  3. METHADONE [Suspect]
     Active Substance: METHADONE HYDROCHLORIDE
     Indication: CANCER PAIN
     Dosage: 10 MG, 30 MG DAILY DOSE
     Route: 048
     Dates: start: 20150327, end: 20150331
  4. URIEF [Concomitant]
     Active Substance: SILODOSIN
     Dosage: 4 MG
     Route: 048
     Dates: end: 20150422
  5. LYRICA [Concomitant]
     Active Substance: PREGABALIN
     Indication: ANALGESIC THERAPY
     Dosage: 75 MG
     Route: 048
     Dates: end: 20150422
  6. MORPHINE [Concomitant]
     Active Substance: MORPHINE
     Indication: ANALGESIC THERAPY
     Dosage: 16 MG
     Route: 051
     Dates: start: 20150501, end: 20150501
  7. THYRADIN [Concomitant]
     Active Substance: LEVOTHYROXINE
     Dosage: 100 MCG
     Route: 048
     Dates: end: 20150422
  8. AVOLVE [Concomitant]
     Active Substance: DUTASTERIDE
     Dosage: 0,5 MG
     Route: 048
     Dates: end: 20150422
  9. BETAMETHASONE. [Concomitant]
     Active Substance: BETAMETHASONE
     Indication: ANALGESIC THERAPY
     Dosage: 1 MG
     Route: 048
     Dates: end: 20150422
  10. METHADONE [Suspect]
     Active Substance: METHADONE HYDROCHLORIDE
     Dosage: 5 MG, 15 MG DAILY DOSE
     Route: 048
     Dates: start: 20150401, end: 20150503
  11. ELIETEN [Concomitant]
     Active Substance: METOCLOPRAMIDE
     Dosage: 30 MG
     Route: 048
     Dates: end: 20150422
  12. SENNARIDE [Concomitant]
     Active Substance: SENNOSIDES A AND B
     Dosage: 24 MG
     Route: 048
     Dates: end: 20150422
  13. LANSOPRAZOLE. [Concomitant]
     Active Substance: LANSOPRAZOLE
     Dosage: 15 MG
     Route: 048
     Dates: end: 20150422

REACTIONS (1)
  - Lung neoplasm malignant [Fatal]

NARRATIVE: CASE EVENT DATE: 20150503
